FAERS Safety Report 8081119-3 (Version None)
Quarter: 2012Q1

REPORT INFORMATION
  Report Type: 
  Country: None (occurrence: None)
  Receive Date: 20120130
  Receipt Date: 20120123
  Transmission Date: 20120608
  Serious: Yes (Hospitalization, Congenital Anomaly)
  Sender: FDA-Public Use
  Company Number: US-GLAXOSMITHKLINE-A0874693A

PATIENT
  Sex: Male
  Weight: 3.6 kg

DRUGS (4)
  1. CLARITIN [Concomitant]
  2. PAXIL [Suspect]
     Indication: ANXIETY
     Dosage: 20MG PER DAY
     Route: 064
  3. SUDAFED 12 HOUR [Concomitant]
  4. NIFEDIPINE [Concomitant]

REACTIONS (9)
  - BLADDER DYSFUNCTION [None]
  - FOETAL EXPOSURE DURING PREGNANCY [None]
  - SPINA BIFIDA [None]
  - HEART DISEASE CONGENITAL [None]
  - TALIPES [None]
  - HIP DYSPLASIA [None]
  - HYDROCEPHALUS [None]
  - CARDIAC MURMUR [None]
  - ARNOLD-CHIARI MALFORMATION [None]
